FAERS Safety Report 6505016-7 (Version None)
Quarter: 2009Q4

REPORT INFORMATION
  Report Type: 
  Country: None (occurrence: None)
  Receive Date: 20091218
  Receipt Date: 20091208
  Transmission Date: 20100525
  Serious: Yes (Hospitalization)
  Sender: FDA-Public Use
  Company Number: US-SANOFI-AVENTIS-2009SA007571

PATIENT
  Age: 68 Year
  Sex: Female

DRUGS (4)
  1. MULTAQ [Suspect]
     Indication: ATRIAL FIBRILLATION
     Route: 048
     Dates: start: 20090101, end: 20090101
  2. VITAMINS [Concomitant]
  3. VITAMINS [Concomitant]
  4. HERBAL PREPARATION [Concomitant]

REACTIONS (1)
  - ATRIAL FLUTTER [None]
